FAERS Safety Report 12450542 (Version 1)
Quarter: 2016Q2

REPORT INFORMATION
  Report Type: Spontaneous
  Country: US (occurrence: None)
  Receive Date: 20160608
  Receipt Date: 20160608
  Transmission Date: 20160815
  Serious: Yes (Disabling)
  Sender: FDA-Public Use
  Company Number: None

PATIENT
  Age: 45 Year
  Sex: Male
  Weight: 72.58 kg

DRUGS (3)
  1. MEDTRONIC INFUSION DEVICE (PAIN PUMP) WITH PRIALT [Concomitant]
  2. GEMFIBROZIL (LIPID) 600MG [Suspect]
     Active Substance: GEMFIBROZIL
     Indication: BLOOD CHOLESTEROL
     Route: 048
     Dates: end: 20160520
  3. HYDROCODONE [Concomitant]
     Active Substance: HYDROCODONE

REACTIONS (2)
  - Ejaculation failure [None]
  - Erectile dysfunction [None]

NARRATIVE: CASE EVENT DATE: 20150619
